FAERS Safety Report 17809417 (Version 1)
Quarter: 2020Q2

REPORT INFORMATION
  Report Type: Other
  Country: SE (occurrence: SE)
  Receive Date: 20200521
  Receipt Date: 20200521
  Transmission Date: 20200714
  Serious: Yes (Life-Threatening)
  Sender: FDA-Public Use
  Company Number: SE-CELLTRION INC.-2020SE022512

PATIENT

DRUGS (4)
  1. CIPRAMIL [CITALOPRAM HYDROBROMIDE] [Concomitant]
     Active Substance: CITALOPRAM HYDROBROMIDE
     Dosage: 20 MG, DAILY
  2. RITEMVIA [Suspect]
     Active Substance: RITUXIMAB
     Indication: MULTIPLE SCLEROSIS
     Dosage: 500 MG
     Route: 042
     Dates: start: 20190527, end: 20190527
  3. RITEMVIA [Suspect]
     Active Substance: RITUXIMAB
     Dosage: 500 MG
     Route: 042
     Dates: start: 20200120, end: 20200120
  4. MABTHERA [Suspect]
     Active Substance: RITUXIMAB
     Indication: MULTIPLE SCLEROSIS
     Dosage: 500 MG
     Route: 042
     Dates: start: 20181024, end: 20181024

REACTIONS (4)
  - Coronavirus infection [Not Recovered/Not Resolved]
  - Pneumonia [Not Recovered/Not Resolved]
  - Condition aggravated [Not Recovered/Not Resolved]
  - Product use in unapproved indication [Unknown]

NARRATIVE: CASE EVENT DATE: 20200413
